FAERS Safety Report 6731192-7 (Version None)
Quarter: 2010Q2

REPORT INFORMATION
  Report Type: 
  Country: None (occurrence: None)
  Receive Date: 20100518
  Receipt Date: 20100505
  Transmission Date: 20101027
  Serious: Yes (Hospitalization)
  Sender: FDA-Public Use
  Company Number: ES-ELI_LILLY_AND_COMPANY-ES201005001366

PATIENT
  Sex: Female
  Weight: 110 kg

DRUGS (10)
  1. FORTEO [Suspect]
     Indication: OSTEOPOROSIS
     Dosage: 20 UG, DAILY (1/D)
     Route: 058
     Dates: start: 20100322
  2. METOTREXATO [Concomitant]
     Indication: POLYARTHRITIS
     Dosage: 6 D/F, WEEKLY (1/W)
     Route: 048
  3. ACFOL [Concomitant]
     Dosage: 1 D/F, WEEKLY (1/W)
     Route: 048
  4. TORASEMIDE [Concomitant]
     Indication: HYPERTENSION
     Dosage: 2 D/F, DAILY (1/D)
     Route: 048
  5. ADOLONTA [Concomitant]
     Indication: PAIN
     Dosage: 1 D/F, EVERY 8 HRS
     Route: 048
  6. IBUPROFENO [Concomitant]
     Indication: PAIN
     Dosage: 1 D/F, EVERY 8 HRS
     Route: 048
  7. LEXATIN [Concomitant]
     Indication: ANXIETY
     Dosage: 1 D/F, EVERY 8 HRS
     Route: 048
  8. CARDIL                             /00489702/ [Concomitant]
     Indication: BLOOD CHOLESTEROL
     Dosage: 1 D/F, DAILY (1/D)
     Route: 048
  9. OMEPRAZOLE [Concomitant]
     Indication: GASTRIC ULCER
     Dosage: 20 MG, DAILY (1/D)
     Route: 048
  10. ENALAPRIL MALEATE [Concomitant]
     Indication: HYPERTENSION
     Dosage: 1 D/F, DAILY (1/D)
     Route: 048

REACTIONS (1)
  - POSTOPERATIVE WOUND INFECTION [None]
